FAERS Safety Report 6608900 (Version 3)
Quarter: 2013Q2

REPORT INFORMATION
  Report Type: Spontaneous
  Country: GB (occurrence: GB)
  Receive Date: 20080408
  Receipt Date: 20130405
  Transmission Date: 20140414
  Serious: Yes (Other)
  Sender: FDA-Public Use
  Company Number: GB-JNJFOC-20080401134

PATIENT
  Age: 5 Year
  Sex: Female
  Weight: 23 kg

DRUGS (2)
  1. IBUPROFEN [Suspect]
     Indication: GASTROENTERITIS
     Route: 048
     Dates: start: 20031225, end: 20031226
  2. IBUPROFEN [Suspect]
     Indication: ABDOMINAL PAIN
     Route: 048
     Dates: start: 20031225, end: 20031226

REACTIONS (2)
  - Renal failure [Recovered/Resolved]
  - Renal tubular necrosis [Recovered/Resolved]
